FAERS Safety Report 6454877-9 (Version None)
Quarter: 2009Q4

REPORT INFORMATION
  Report Type: 
  Country: None (occurrence: None)
  Receive Date: 20091124
  Receipt Date: 20091113
  Transmission Date: 20100525
  Serious: Yes (Hospitalization)
  Sender: FDA-Public Use
  Company Number: PT-MERCK-0911PRT00006

PATIENT
  Age: 74 Year
  Sex: Male

DRUGS (13)
  1. JANUMET [Suspect]
     Indication: TYPE 2 DIABETES MELLITUS
     Route: 048
     Dates: start: 20090929, end: 20091008
  2. ALLOPURINOL [Concomitant]
     Route: 065
  3. GLIPIZIDE [Concomitant]
     Route: 048
  4. SIMVASTATIN [Concomitant]
     Route: 048
  5. LISINOPRIL [Concomitant]
     Route: 048
  6. HYDROCHLOROTHIAZIDE AND VALSARTAN [Concomitant]
     Route: 048
  7. CLOPIDOGREL BISULFATE [Concomitant]
     Route: 048
  8. AMLODIPINE BESYLATE [Concomitant]
     Route: 048
  9. FUROSEMIDE [Concomitant]
     Route: 048
  10. METHYLPREDNISOLONE [Concomitant]
     Route: 065
  11. EBASTINE [Concomitant]
     Route: 065
  12. HYDROXYZINE HYDROCHLORIDE [Concomitant]
     Route: 065
  13. ASPIRIN [Concomitant]
     Route: 065

REACTIONS (1)
  - TOXIC SKIN ERUPTION [None]
